FAERS Safety Report 9371412 (Version 1)
Quarter: 2013Q2

REPORT INFORMATION
  Report Type: Spontaneous
  Country: US (occurrence: None)
  Receive Date: 20130626
  Receipt Date: 20130626
  Transmission Date: 20140414
  Serious: Yes (Other)
  Sender: FDA-Public Use
  Company Number: None

PATIENT
  Sex: Male

DRUGS (1)
  1. SODIUM LAURETH SULFATE [Suspect]

REACTIONS (3)
  - Loss of consciousness [None]
  - Accidental exposure to product [None]
  - Drug abuse [None]
